FAERS Safety Report 5883416-6 (Version None)
Quarter: 2008Q3

REPORT INFORMATION
  Report Type: 
  Country: None (occurrence: None)
  Receive Date: 20080915
  Receipt Date: 20080910
  Transmission Date: 20090109
  Serious: Yes (Life-Threatening, Other)
  Sender: FDA-Public Use
  Company Number: JP-BAYER-200811658BYL

PATIENT
  Age: 85 Year
  Sex: Male

DRUGS (23)
  1. CIPROXAN-I.V. [Suspect]
     Indication: DRUG USE FOR UNKNOWN INDICATION
     Dosage: TOTAL DAILY DOSE: 600 MG
     Route: 041
     Dates: end: 20080212
  2. AMBISOME [Suspect]
     Indication: FEBRILE NEUTROPENIA
     Dosage: TOTAL DAILY DOSE: 100 MG
     Route: 041
     Dates: start: 20080208, end: 20080210
  3. MEROPEN [Suspect]
     Indication: DRUG USE FOR UNKNOWN INDICATION
     Dosage: TOTAL DAILY DOSE: 2 G
     Route: 041
     Dates: start: 20080207, end: 20080212
  4. ITRIZOLE [Concomitant]
     Indication: DRUG USE FOR UNKNOWN INDICATION
     Dosage: TOTAL DAILY DOSE: 200 MG
     Route: 041
     Dates: end: 20080207
  5. AMLODIPINE BESYLATE [Concomitant]
     Indication: DRUG USE FOR UNKNOWN INDICATION
     Dosage: TOTAL DAILY DOSE: 5 MG
     Route: 048
     Dates: end: 20080213
  6. FASTIC [Concomitant]
     Indication: DRUG USE FOR UNKNOWN INDICATION
     Dosage: TOTAL DAILY DOSE: 90 MG
     Route: 048
     Dates: end: 20080213
  7. MUCOSTA [Concomitant]
     Indication: DRUG USE FOR UNKNOWN INDICATION
     Dosage: TOTAL DAILY DOSE: 300 MG
     Route: 048
     Dates: end: 20080213
  8. OMEPRAZOLE [Concomitant]
     Indication: DRUG USE FOR UNKNOWN INDICATION
     Dosage: TOTAL DAILY DOSE: 20 MG
     Route: 048
     Dates: end: 20080213
  9. MERCAZOLE [Concomitant]
     Indication: DRUG USE FOR UNKNOWN INDICATION
     Dosage: TOTAL DAILY DOSE: 5 MG
     Route: 048
     Dates: end: 20080211
  10. BFLUID [Concomitant]
     Indication: DRUG USE FOR UNKNOWN INDICATION
     Dosage: TOTAL DAILY DOSE: 1500 ML
     Route: 041
     Dates: start: 20080209, end: 20080212
  11. VENOGLOBULIN [Concomitant]
     Indication: DRUG USE FOR UNKNOWN INDICATION
     Dosage: TOTAL DAILY DOSE: 5 G
     Route: 042
     Dates: start: 20080207, end: 20080211
  12. SOLU-MEDROL [Concomitant]
     Indication: DRUG USE FOR UNKNOWN INDICATION
     Dosage: TOTAL DAILY DOSE: 1 G
     Route: 042
     Dates: start: 20080207, end: 20080212
  13. ELASPOL [Concomitant]
     Indication: DRUG USE FOR UNKNOWN INDICATION
     Dosage: TOTAL DAILY DOSE: 250 MG
     Route: 041
     Dates: start: 20080207
  14. FAMOTIDINE [Concomitant]
     Indication: DRUG USE FOR UNKNOWN INDICATION
     Dosage: TOTAL DAILY DOSE: 40 MG
     Route: 065
     Dates: start: 20080211
  15. BACTRIM [Concomitant]
     Indication: DRUG USE FOR UNKNOWN INDICATION
     Dosage: TOTAL DAILY DOSE: 20 ML
     Route: 041
     Dates: start: 20080211
  16. PREDOPA [Concomitant]
     Indication: DRUG USE FOR UNKNOWN INDICATION
     Dosage: TOTAL DAILY DOSE: 15 ML
     Route: 041
     Dates: start: 20080212
  17. DALACIN-S [Concomitant]
     Indication: DRUG USE FOR UNKNOWN INDICATION
     Dosage: TOTAL DAILY DOSE: 600 MG
     Route: 065
     Dates: start: 20080212
  18. FINIBAX [Concomitant]
     Indication: DRUG USE FOR UNKNOWN INDICATION
     Dosage: TOTAL DAILY DOSE: 0.5 G
     Route: 041
     Dates: start: 20080212
  19. NOR-ADRENALIN [Concomitant]
     Indication: DRUG USE FOR UNKNOWN INDICATION
     Dosage: TOTAL DAILY DOSE: 1 MG
     Route: 065
     Dates: start: 20080212
  20. DENOSINE [Concomitant]
     Indication: DRUG USE FOR UNKNOWN INDICATION
     Dosage: TOTAL DAILY DOSE: 300 MG
     Route: 041
     Dates: start: 20080207
  21. HUMULIN R [Concomitant]
     Indication: DRUG USE FOR UNKNOWN INDICATION
     Dosage: TOTAL DAILY DOSE: 20 IU
     Route: 058
     Dates: start: 20080212
  22. NEOAMIYU [Concomitant]
     Indication: DRUG USE FOR UNKNOWN INDICATION
     Dosage: TOTAL DAILY DOSE: 400 ML
     Route: 041
     Dates: start: 20080212
  23. HICALIQ RF [Concomitant]
     Indication: DRUG USE FOR UNKNOWN INDICATION
     Route: 042
     Dates: start: 20080212

REACTIONS (5)
  - BLOOD URINE PRESENT [None]
  - DYSPNOEA [None]
  - PNEUMONIA [None]
  - RENAL DISORDER [None]
  - SHOCK [None]
